FAERS Safety Report 9801342 (Version 1)
Quarter: 2014Q1

REPORT INFORMATION
  Report Type: Spontaneous
  Country: US (occurrence: US)
  Receive Date: 20140107
  Receipt Date: 20140107
  Transmission Date: 20141002
  Serious: No
  Sender: FDA-Public Use
  Company Number: US-GLAXOSMITHKLINE-A1047315A

PATIENT
  Age: 49 Year
  Sex: Female

DRUGS (3)
  1. BENLYSTA [Suspect]
     Indication: SYSTEMIC LUPUS ERYTHEMATOSUS
     Dosage: 10MGK SINGLE DOSE
     Route: 042
     Dates: start: 201310
  2. PLAQUENIL [Concomitant]
  3. OTHER MEDICATIONS [Concomitant]

REACTIONS (1)
  - Haematuria [Not Recovered/Not Resolved]
